FAERS Safety Report 24163999 (Version 1)
Quarter: 2024Q3

REPORT INFORMATION
  Report Type: Spontaneous
  Country: CZ (occurrence: CZ)
  Receive Date: 20240801
  Receipt Date: 20240801
  Transmission Date: 20241016
  Serious: Yes (Disabling)
  Sender: MYLAN
  Company Number: CZ-AUROBINDO-AUR-APL-2024-035127

PATIENT
  Age: 46 Year
  Sex: Male

DRUGS (1)
  1. METFORMIN [Suspect]
     Active Substance: METFORMIN HYDROCHLORIDE
     Indication: Type 2 diabetes mellitus
     Dosage: 1000 MILLIGRAM, QD (500 MILLIGRAM, TWO TIMES A DAY)
     Route: 065

REACTIONS (4)
  - Flatulence [Unknown]
  - Diarrhoea [Unknown]
  - Dyspepsia [Unknown]
  - Drug intolerance [Unknown]
